FAERS Safety Report 24664855 (Version 1)
Quarter: 2024Q4

REPORT INFORMATION
  Report Type: Spontaneous
  Country: US (occurrence: None)
  Receive Date: 20241125
  Receipt Date: 20241125
  Transmission Date: 20250115
  Serious: No
  Sender: Public
  Company Number: None

PATIENT
  Age: 68 Year
  Sex: Female
  Weight: 72.9 kg

DRUGS (5)
  1. VANTIN [Suspect]
     Active Substance: CEFPODOXIME PROXETIL
     Indication: Diverticulitis
     Dosage: OTHER QUANTITY : 1 TABLET(S);?FREQUENCY : TWICE A DAY;?
     Route: 048
     Dates: start: 20241111, end: 20241113
  2. LISINOPRIL [Concomitant]
     Active Substance: LISINOPRIL
  3. TYLENOL [Concomitant]
     Active Substance: ACETAMINOPHEN
  4. CURCUMIN [Concomitant]
     Active Substance: CURCUMIN
  5. VITAMINS [Concomitant]
     Active Substance: VITAMINS

REACTIONS (8)
  - Nausea [None]
  - Headache [None]
  - Dizziness [None]
  - Memory impairment [None]
  - Fatigue [None]
  - Visual impairment [None]
  - Palpitations [None]
  - Brain fog [None]

NARRATIVE: CASE EVENT DATE: 20241111
